FAERS Safety Report 7897622-2 (Version None)
Quarter: 2011Q4

REPORT INFORMATION
  Report Type: 
  Country: None (occurrence: None)
  Receive Date: 20111107
  Receipt Date: 20111101
  Transmission Date: 20120403
  Serious: Yes (Other)
  Sender: FDA-Public Use
  Company Number: US-PFIZER INC-2011267735

PATIENT
  Sex: Female
  Weight: 78 kg

DRUGS (1)
  1. PREMARIN [Suspect]
     Dosage: UNK, 1X/DAY
     Route: 067
     Dates: start: 20111031, end: 20111101

REACTIONS (1)
  - HAEMORRHAGE [None]
